FAERS Safety Report 8356443-7 (Version None)
Quarter: 2012Q2

REPORT INFORMATION
  Report Type: 
  Country: None (occurrence: None)
  Receive Date: 20120514
  Receipt Date: 20120511
  Transmission Date: 20120825
  Serious: Yes (Other)
  Sender: FDA-Public Use
  Company Number: JP-PFIZER INC-2012115024

PATIENT
  Age: 38 Year
  Sex: Female

DRUGS (1)
  1. VARENICLINE TARTRATE [Suspect]
     Dosage: 2 MG/DAY
     Route: 048
     Dates: start: 20120406

REACTIONS (3)
  - SYNCOPE [None]
  - NIGHTMARE [None]
  - DEPRESSIVE SYMPTOM [None]
